FAERS Safety Report 16363599 (Version 1)
Quarter: 2019Q2

REPORT INFORMATION
  Report Type: Spontaneous
  Country: FR (occurrence: FR)
  Receive Date: 20190528
  Receipt Date: 20190528
  Transmission Date: 20190711
  Serious: Yes (Other)
  Sender: FDA-Public Use
  Company Number: FR-ASTRAZENECA-2019SE77882

PATIENT
  Sex: Female

DRUGS (3)
  1. XGEVA [Concomitant]
     Active Substance: DENOSUMAB
  2. DECAPEPTYL [Concomitant]
  3. LYNPARZA [Suspect]
     Active Substance: OLAPARIB
     Route: 048

REACTIONS (3)
  - Rash [Unknown]
  - Product prescribing error [Recovered/Resolved]
  - Skin plaque [Unknown]
